FAERS Safety Report 16651280 (Version 1)
Quarter: 2019Q3

REPORT INFORMATION
  Report Type: Spontaneous
  Country: JP (occurrence: JP)
  Receive Date: 20190731
  Receipt Date: 20190731
  Transmission Date: 20191004
  Serious: Yes (Other)
  Sender: FDA-Public Use
  Company Number: JP-PFIZER INC-2019318530

PATIENT
  Age: 17 Year
  Sex: Female

DRUGS (2)
  1. HEPARIN [Concomitant]
     Active Substance: HEPARIN SODIUM
     Dosage: 20 UNITS/KG/H
  2. METHYLPREDNISOLONE SODIUM SUCCINATE. [Suspect]
     Active Substance: METHYLPREDNISOLONE SODIUM SUCCINATE
     Dosage: 20 MG/KG/DAY FOR 3 CONSECUTIVE DAYS PER WEEK, FOR 2 WEEKS
     Route: 042

REACTIONS (1)
  - Peripheral artery thrombosis [Recovered/Resolved]
